FAERS Safety Report 9506502 (Version 1)
Quarter: 2013Q1

REPORT INFORMATION
  Report Type: Spontaneous
  Country: US (occurrence: None)
  Receive Date: 20130305
  Receipt Date: 20130305
  Transmission Date: 20140127
  Serious: Yes (Other)
  Sender: FDA-Public Use
  Company Number: 163-21880-12030395

PATIENT
  Age: 58 Year
  Sex: Female

DRUGS (4)
  1. REVLIMID [Suspect]
     Indication: PLASMA CELL MYELOMA
     Dosage: X 21 DAYS
     Route: 048
     Dates: start: 20100527, end: 20111130
  2. DECADRON [Concomitant]
  3. PROCRIT [Concomitant]
  4. VELCADE [Concomitant]

REACTIONS (1)
  - Bone marrow failure [None]
